FAERS Safety Report 7103588-5 (Version None)
Quarter: 2010Q4

REPORT INFORMATION
  Report Type: 
  Country: None (occurrence: None)
  Receive Date: 20101115
  Receipt Date: 20101112
  Transmission Date: 20110411
  Serious: Yes (Life-Threatening, Hospitalization, Other)
  Sender: FDA-Public Use
  Company Number: GXKR2010DE10247

PATIENT
  Age: 57 Year
  Sex: Female
  Weight: 105 kg

DRUGS (7)
  1. DICLOFENAC (NGX) [Suspect]
     Indication: BONE PAIN
     Dosage: 75 MG, BID
     Route: 048
     Dates: start: 20041101, end: 20100525
  2. RAMIPRIL [Suspect]
     Indication: HYPERTENSION
     Dosage: 2.5 MG, QD
     Route: 048
     Dates: start: 20080101, end: 20100528
  3. TRAMADOLOR ^HEXAL^ [Concomitant]
  4. METFORMIN HCL [Concomitant]
  5. GABAPENTIN [Concomitant]
  6. RESTEX [Concomitant]
  7. VIANI [Concomitant]

REACTIONS (2)
  - HYPERKALAEMIA [None]
  - RENAL FAILURE ACUTE [None]
